FAERS Safety Report 24191161 (Version 1)
Quarter: 2024Q3

REPORT INFORMATION
  Report Type: Spontaneous
  Country: JP (occurrence: JP)
  Receive Date: 20240808
  Receipt Date: 20240808
  Transmission Date: 20241017
  Serious: Yes (Other)
  Sender: JOHNSON AND JOHNSON
  Company Number: JP-BAYER-2024A113807

PATIENT

DRUGS (1)
  1. XARELTO [Suspect]
     Active Substance: RIVAROXABAN
     Indication: Embolism venous
     Dosage: 1 DF, QD
     Route: 048

REACTIONS (3)
  - Hepatic cirrhosis [Unknown]
  - Platelet count decreased [Unknown]
  - Haemorrhagic diathesis [Unknown]
